FAERS Safety Report 10042344 (Version 1)
Quarter: 2014Q1

REPORT INFORMATION
  Report Type: Spontaneous
  Country: IN (occurrence: IN)
  Receive Date: 20140327
  Receipt Date: 20140327
  Transmission Date: 20141002
  Serious: Yes (Hospitalization)
  Sender: FDA-Public Use
  Company Number: IN-PFIZER INC-2014083237

PATIENT
  Age: 18 Year
  Sex: Male

DRUGS (2)
  1. PHENYTOIN SODIUM [Suspect]
     Indication: CONVULSION
     Dosage: 1000 MG, LOADING DOSE
     Route: 042
  2. LEVETIRACETAM [Concomitant]
     Indication: CONVULSION

REACTIONS (4)
  - Acute generalised exanthematous pustulosis [Recovered/Resolved]
  - Cerebellar syndrome [Recovered/Resolved]
  - Leukocytosis [Unknown]
  - Renal function test abnormal [Recovered/Resolved]
